FAERS Safety Report 17845218 (Version 1)
Quarter: 2020Q2

REPORT INFORMATION
  Report Type: Spontaneous
  Country: US (occurrence: US)
  Receive Date: 20200601
  Receipt Date: 20200601
  Transmission Date: 20200714
  Serious: No
  Sender: FDA-Public Use
  Company Number: US-HETERO-HET2020US00575

PATIENT
  Sex: Female
  Weight: 68 kg

DRUGS (2)
  1. LOSARTAN. [Suspect]
     Active Substance: LOSARTAN
     Indication: PRODUCT USED FOR UNKNOWN INDICATION
     Dosage: 50 UNK
     Route: 048
  2. LOSARTAN. [Suspect]
     Active Substance: LOSARTAN
     Dosage: 100 MG
     Route: 048

REACTIONS (3)
  - Hyperlipidaemia [Unknown]
  - Peripheral swelling [Unknown]
  - Joint swelling [Unknown]
